FAERS Safety Report 16277150 (Version 1)
Quarter: 2019Q2

REPORT INFORMATION
  Report Type: Spontaneous
  Country: GB (occurrence: GB)
  Receive Date: 20190506
  Receipt Date: 20190506
  Transmission Date: 20190711
  Serious: Yes (Disabling)
  Sender: FDA-Public Use
  Company Number: GB-TEVA-2019-GB-1045281

PATIENT
  Age: 63 Year
  Sex: Female
  Weight: 61 kg

DRUGS (31)
  1. LEVOFLOXACIN TABLETS, 250 MG, 500 MG AND 750 MG [Suspect]
     Active Substance: LEVOFLOXACIN
     Indication: INFECTIVE EXACERBATION OF BRONCHIECTASIS
     Route: 048
     Dates: start: 20190104, end: 20190105
  2. COLECALCIFEROL [Concomitant]
     Active Substance: CHOLECALCIFEROL
  3. CLONIDINE. [Concomitant]
     Active Substance: CLONIDINE
  4. PHYLLOCONTIN [Concomitant]
     Active Substance: AMINOPHYLLINE
  5. BISOPROLOL [Concomitant]
     Active Substance: BISOPROLOL
  6. DOXYCYCLINE. [Concomitant]
     Active Substance: DOXYCYCLINE
  7. SERTRALINE [Concomitant]
     Active Substance: SERTRALINE HYDROCHLORIDE
  8. FEXOFENADINE [Concomitant]
     Active Substance: FEXOFENADINE\FEXOFENADINE HYDROCHLORIDE
  9. PROMETHAZINE HYDROCHLORIDE. [Concomitant]
     Active Substance: PROMETHAZINE HYDROCHLORIDE
  10. ACETYLSALICYLIC ACID [Concomitant]
     Active Substance: ASPIRIN
  11. SYMBICORT [Concomitant]
     Active Substance: BUDESONIDE\FORMOTEROL FUMARATE DIHYDRATE
  12. COCODAMOL [Concomitant]
     Active Substance: ACETAMINOPHEN\CODEINE PHOSPHATE
  13. NARATRIPTAN [Concomitant]
     Active Substance: NARATRIPTAN HYDROCHLORIDE
  14. COLCHICINE. [Concomitant]
     Active Substance: COLCHICINE
  15. PERINDOPRIL TERT-BUTYLAMINE [Concomitant]
     Active Substance: PERINDOPRIL ERBUMINE
  16. BRALTUS [Concomitant]
     Active Substance: TIOTROPIUM BROMIDE
  17. FOLIC ACID. [Concomitant]
     Active Substance: FOLIC ACID
  18. SALBUTAMOL [Concomitant]
     Active Substance: ALBUTEROL
  19. ALLOPURINOL. [Concomitant]
     Active Substance: ALLOPURINOL
  20. PIZOTIFEN [Concomitant]
     Active Substance: PIZOTYLINE
  21. MONTELUKAST SODIUM. [Concomitant]
     Active Substance: MONTELUKAST SODIUM
  22. ISOSORBIDE MONONITRATE. [Concomitant]
     Active Substance: ISOSORBIDE MONONITRATE
  23. CO-AMOXICLAV [Concomitant]
     Active Substance: AMOXICILLIN\CLAVULANATE POTASSIUM
  24. FERROUS FUMARATE [Concomitant]
     Active Substance: FERROUS FUMARATE
  25. PREDNISOLONE. [Concomitant]
     Active Substance: PREDNISOLONE
  26. OMEPRAZOLE. [Concomitant]
     Active Substance: OMEPRAZOLE
  27. TICAGRELOR. [Concomitant]
     Active Substance: TICAGRELOR
  28. ASCORBIC ACID. [Concomitant]
     Active Substance: ASCORBIC ACID
  29. ONDANSETRON [Concomitant]
     Active Substance: ONDANSETRON
  30. HYDROXOCOBALAMIN [Concomitant]
     Active Substance: HYDROXOCOBALAMIN
  31. ATORVASTATIN [Concomitant]
     Active Substance: ATORVASTATIN

REACTIONS (2)
  - Tendonitis [Recovering/Resolving]
  - Peripheral swelling [Recovering/Resolving]

NARRATIVE: CASE EVENT DATE: 20190105
